FAERS Safety Report 15295208 (Version 1)
Quarter: 2018Q3

REPORT INFORMATION
  Report Type: Spontaneous
  Country: US (occurrence: US)
  Receive Date: 20180820
  Receipt Date: 20180820
  Transmission Date: 20181010
  Serious: No
  Sender: FDA-Public Use
  Company Number: US-PFIZER INC-2018334886

PATIENT
  Age: 66 Year
  Sex: Male
  Weight: 106.6 kg

DRUGS (2)
  1. ZETIA [Suspect]
     Active Substance: EZETIMIBE
  2. LIPITOR [Suspect]
     Active Substance: ATORVASTATIN CALCIUM

REACTIONS (1)
  - Myalgia [Unknown]
